FAERS Safety Report 22218531 (Version 1)
Quarter: 2023Q2

REPORT INFORMATION
  Report Type: Spontaneous
  Country: JP (occurrence: JP)
  Receive Date: 20230417
  Receipt Date: 20230417
  Transmission Date: 20230722
  Serious: Yes (Hospitalization, Other)
  Sender: FDA-Public Use
  Company Number: JP-ViiV Healthcare Limited-JP2023JPN052047

PATIENT

DRUGS (3)
  1. EPZICOM [Suspect]
     Active Substance: ABACAVIR SULFATE\LAMIVUDINE
     Indication: HIV infection
     Dosage: UNK
  2. ATAZANAVIR SULFATE [Suspect]
     Active Substance: ATAZANAVIR SULFATE
     Indication: HIV infection
     Dosage: UNK
  3. RITONAVIR [Suspect]
     Active Substance: RITONAVIR
     Indication: HIV infection
     Dosage: UNK

REACTIONS (8)
  - Immune reconstitution inflammatory syndrome [Unknown]
  - Type 1 diabetes mellitus [Unknown]
  - Hyperthyroidism [Unknown]
  - Graves^ disease [Unknown]
  - Viral infection [Unknown]
  - Upper respiratory tract inflammation [Unknown]
  - Pyrexia [Unknown]
  - Thirst [Unknown]
